FAERS Safety Report 24545608 (Version 3)
Quarter: 2025Q2

REPORT INFORMATION
  Report Type: Spontaneous
  Country: RO (occurrence: RO)
  Receive Date: 20241024
  Receipt Date: 20250516
  Transmission Date: 20250717
  Serious: Yes (Life-Threatening, Hospitalization, Other)
  Sender: TETRAPHASE PHARMACEUTICALS, INC.
  Company Number: RO-TETRAPHASE PHARMACEUTICALS, INC-2024-ISTX-000084

PATIENT

DRUGS (14)
  1. XERAVA [Suspect]
     Active Substance: ERAVACYCLINE DIHYDROCHLORIDE
     Indication: Klebsiella infection
     Dosage: 100 MG, BID
     Route: 042
  2. CANDESARTAN [Concomitant]
     Active Substance: CANDESARTAN
     Indication: Product used for unknown indication
  3. NICERGOLINE [Concomitant]
     Active Substance: NICERGOLINE
     Indication: Product used for unknown indication
  4. PIRACETAM [Concomitant]
     Active Substance: PIRACETAM
     Indication: Product used for unknown indication
  5. CITICOLINE [Concomitant]
     Active Substance: CITICOLINE
     Indication: Product used for unknown indication
  6. METOPROLOL [Concomitant]
     Active Substance: METOPROLOL
     Indication: Product used for unknown indication
  7. METFORMIN [Concomitant]
     Active Substance: METFORMIN HYDROCHLORIDE
     Indication: Product used for unknown indication
  8. ATORVASTATIN [Concomitant]
     Active Substance: ATORVASTATIN
     Indication: Product used for unknown indication
  9. ASPIRIN [Concomitant]
     Active Substance: ASPIRIN
     Indication: Product used for unknown indication
  10. INSULIN DEGLUDEC [Concomitant]
     Active Substance: INSULIN DEGLUDEC
     Indication: Product used for unknown indication
  11. DIETARY SUPPLEMENT\HERBALS\MILK THISTLE [Concomitant]
     Active Substance: MILK THISTLE
     Indication: Product used for unknown indication
  12. MEROPENEM [Concomitant]
     Active Substance: MEROPENEM
     Indication: Klebsiella sepsis
     Route: 042
  13. COLISTIN [Concomitant]
     Active Substance: COLISTIN
     Indication: Klebsiella sepsis
     Route: 042
  14. AMIKACIN [Concomitant]
     Active Substance: AMIKACIN
     Indication: Klebsiella sepsis
     Route: 042

REACTIONS (5)
  - Catheter site cellulitis [Unknown]
  - Catheter site necrosis [Unknown]
  - Catheter site phlebitis [Unknown]
  - International normalised ratio increased [Unknown]
  - Prothrombin time prolonged [Unknown]
